FAERS Safety Report 22031692 (Version 1)
Quarter: 2023Q1

REPORT INFORMATION
  Report Type: Spontaneous
  Country: FR (occurrence: FR)
  Receive Date: 20230224
  Receipt Date: 20230224
  Transmission Date: 20230417
  Serious: Yes (Life-Threatening)
  Sender: FDA-Public Use
  Company Number: None

PATIENT
  Age: 16 Year
  Sex: Female

DRUGS (2)
  1. TRAMADOL [Suspect]
     Active Substance: TRAMADOL
     Indication: Intentional overdose
     Dosage: 13 TABLETS OF 50MG
     Dates: start: 20210805, end: 20210805
  2. IBUPROFEN [Suspect]
     Active Substance: IBUPROFEN
     Indication: Intentional overdose
     Dosage: 10 TABLETS OF 400MG
     Dates: start: 20210805, end: 20210805

REACTIONS (3)
  - Somnolence [Recovered/Resolved]
  - Disorientation [Recovered/Resolved]
  - Intentional overdose [Recovered/Resolved]

NARRATIVE: CASE EVENT DATE: 20210805
